FAERS Safety Report 7269573-8 (Version None)
Quarter: 2011Q1

REPORT INFORMATION
  Report Type: 
  Country: None (occurrence: None)
  Receive Date: 20110124
  Receipt Date: 20110110
  Transmission Date: 20110831
  Serious: Yes (Death)
  Sender: FDA-Public Use
  Company Number: 025309

PATIENT
  Age: 63 Year
  Sex: Male

DRUGS (2)
  1. PHENTERMINE [Suspect]
  2. DIAZEPAM [Suspect]

REACTIONS (3)
  - CARDIAC ARREST [None]
  - RESPIRATORY ARREST [None]
  - MEDICATION ERROR [None]
